FAERS Safety Report 9894305 (Version 2)
Quarter: 2014Q1

REPORT INFORMATION
  Report Type: Report from Study
  Country: ES (occurrence: ES)
  Receive Date: 20140213
  Receipt Date: 20140220
  Transmission Date: 20141002
  Serious: Yes (Hospitalization)
  Sender: FDA-Public Use
  Company Number: ES-GLAXOSMITHKLINE-Z0022114A

PATIENT
  Age: 47 Year
  Sex: Male

DRUGS (6)
  1. ZANAMIVIR [Suspect]
     Indication: INFLUENZA
     Dosage: 300MG TWICE PER DAY
     Route: 042
     Dates: start: 20140127
  2. FENTANYL [Concomitant]
     Indication: ANALGESIC THERAPY
     Dosage: 1.125MG FOUR TIMES PER DAY
     Route: 042
     Dates: start: 20140126, end: 20140131
  3. CEFTRIAXONE [Concomitant]
     Indication: PNEUMONIA
     Dosage: 2G PER DAY
     Route: 042
     Dates: start: 20140126, end: 20140129
  4. LEVOFLOXACIN [Concomitant]
     Indication: PNEUMONIA
     Dosage: 500MG TWICE PER DAY
     Route: 042
     Dates: start: 20140126, end: 20140212
  5. CHLORHEXIDINE [Concomitant]
     Indication: DENTAL DISORDER PROPHYLAXIS
     Dosage: 5ML THREE TIMES PER DAY
     Route: 061
     Dates: start: 20140126
  6. AMOXYCILLIN + POTASSIUM CLAVULANATE [Concomitant]
     Indication: PNEUMONIA
     Dosage: 2G FOUR TIMES PER DAY
     Route: 042
     Dates: start: 20140129, end: 20140130

REACTIONS (1)
  - Hyperthermia [Not Recovered/Not Resolved]
